FAERS Safety Report 9166121 (Version 2)
Quarter: 2013Q1

REPORT INFORMATION
  Report Type: Report from Study
  Country: US (occurrence: US)
  Receive Date: 20130315
  Receipt Date: 20130325
  Transmission Date: 20140127
  Serious: Yes (Life-Threatening)
  Sender: FDA-Public Use
  Company Number: US-JNJFOC-20130306776

PATIENT
  Age: 17 Year
  Sex: Male
  Weight: 60.6 kg

DRUGS (10)
  1. REMICADE [Suspect]
     Indication: INFLAMMATORY BOWEL DISEASE
     Route: 042
     Dates: start: 20121031
  2. REMICADE [Suspect]
     Indication: INFLAMMATORY BOWEL DISEASE
     Route: 042
     Dates: start: 20071228
  3. REMICADE [Suspect]
     Indication: INFLAMMATORY BOWEL DISEASE
     Route: 042
     Dates: start: 20121114, end: 20121114
  4. VITAMIN D [Concomitant]
     Route: 065
  5. FOLIC ACID [Concomitant]
     Route: 065
  6. PREDNISONE [Concomitant]
     Route: 065
  7. METHOTREXATE [Concomitant]
     Route: 065
  8. HUMIRA [Concomitant]
     Route: 065
  9. 5-ASA [Concomitant]
     Route: 048
  10. ANTIBIOTICS FOR IBD [Concomitant]
     Route: 065

REACTIONS (1)
  - Anaphylactic reaction [Recovered/Resolved]
